FAERS Safety Report 6172985-7 (Version None)
Quarter: 2009Q2

REPORT INFORMATION
  Report Type: 
  Country: None (occurrence: None)
  Receive Date: 20090430
  Receipt Date: 20090428
  Transmission Date: 20091009
  Serious: No
  Sender: FDA-Public Use
  Company Number: US-BAYER-200828487NA

PATIENT
  Age: 21 Year
  Sex: Female

DRUGS (1)
  1. MIRENA [Suspect]
     Indication: CONTRACEPTION
     Dosage: 20 UG/DAY CONTINUOUS
     Route: 015
     Dates: start: 20070901

REACTIONS (5)
  - AMENORRHOEA [None]
  - ANTEPARTUM HAEMORRHAGE [None]
  - COMPLICATION OF DEVICE REMOVAL [None]
  - INTRA-UTERINE CONTRACEPTIVE DEVICE EXPELLED [None]
  - PREGNANCY WITH CONTRACEPTIVE DEVICE [None]
